FAERS Safety Report 7278690-8 (Version None)
Quarter: 2011Q1

REPORT INFORMATION
  Report Type: 
  Country: None (occurrence: None)
  Receive Date: 20110207
  Receipt Date: 20110125
  Transmission Date: 20110831
  Serious: Yes (Hospitalization)
  Sender: FDA-Public Use
  Company Number: PHHY2011GB05748

PATIENT
  Sex: Female

DRUGS (12)
  1. FUROSEMIDE [Concomitant]
     Dosage: 40 MG, QD
     Route: 048
  2. LANSOPRAZOLE [Concomitant]
     Dosage: 30 MG, QD
     Route: 048
  3. LEVOTHYROXINE SODIUM [Concomitant]
     Dosage: 75 UG, QD
  4. SERETIDE [Concomitant]
     Dosage: UNK
     Route: 045
  5. CALCICHEW D3 [Concomitant]
     Dosage: UNK
  6. PARACETAMOL [Concomitant]
     Dosage: 1 G, QID
     Route: 048
  7. SIMVASTATIN [Concomitant]
     Dosage: 10 MG, QD
     Route: 048
  8. WARFARIN [Concomitant]
     Dosage: 3 MG, QD
  9. AMOXICILLIN [Suspect]
     Indication: LOWER RESPIRATORY TRACT INFECTION
     Dosage: 250 MG, TID
     Route: 048
     Dates: start: 20110105, end: 20110105
  10. STRONTIUM RANELATE [Concomitant]
     Dosage: 2 G, QD
  11. WARFARIN [Concomitant]
     Dosage: 1 MG, 1 / 3DAYS
  12. DIGOXIN [Concomitant]
     Dosage: 125 UG, 1 / 1DAYS

REACTIONS (2)
  - PYREXIA [None]
  - DIARRHOEA [None]
